FAERS Safety Report 6051938-3 (Version None)
Quarter: 2009Q1

REPORT INFORMATION
  Report Type: 
  Country: None (occurrence: None)
  Receive Date: 20090121
  Receipt Date: 20080313
  Transmission Date: 20090719
  Serious: Yes (Other)
  Sender: FDA-Public Use
  Company Number: HQWYE198416JUL04

PATIENT
  Age: 53 Year
  Sex: Female
  Weight: 108.96 kg

DRUGS (2)
  1. PREMPRO [Suspect]
  2. TOPRAL (SULTOPRIDE) [Concomitant]

REACTIONS (1)
  - MYOCARDIAL INFARCTION [None]
